FAERS Safety Report 8779703 (Version 2)
Quarter: 2012Q4

REPORT INFORMATION
  Report Type: 
  Country: US (occurrence: US)
  Receive Date: 20120912
  Receipt Date: 20121002
  Transmission Date: 20130627
  Serious: No
  Sender: FDA-Public Use
  Company Number: US-TEVA-356154USA

PATIENT
  Age: 73 Year
  Sex: Male
  Weight: 81.72 kg

DRUGS (1)
  1. QNASL [Suspect]
     Indication: HYPERSENSITIVITY
     Dates: start: 20120824

REACTIONS (3)
  - Ear congestion [Recovered/Resolved]
  - Nasal discomfort [Recovered/Resolved]
  - Upper respiratory tract congestion [Recovered/Resolved]
